FAERS Safety Report 18506002 (Version 1)
Quarter: 2020Q4

REPORT INFORMATION
  Report Type: Spontaneous
  Country: JP (occurrence: JP)
  Receive Date: 20201116
  Receipt Date: 20201116
  Transmission Date: 20210114
  Serious: Yes (Hospitalization)
  Sender: FDA-Public Use
  Company Number: JP-009507513-2011JPN001439J

PATIENT
  Age: 74 Year

DRUGS (3)
  1. KEYTRUDA [Suspect]
     Active Substance: PEMBROLIZUMAB
     Indication: LUNG SQUAMOUS CELL CARCINOMA STAGE IV
     Dosage: 200 MILLIGRAM, Q3W
     Route: 041
     Dates: start: 20200601, end: 20200601
  2. CARBOPLATIN. [Suspect]
     Active Substance: CARBOPLATIN
     Dosage: 370 MILLIGRAM, Q3W
     Route: 041
     Dates: start: 20200601, end: 20200601
  3. ABRAXANE [Suspect]
     Active Substance: PACLITAXEL
     Dosage: 150 MILLIGRAM, QW
     Route: 041
     Dates: start: 20200601, end: 20200615

REACTIONS (1)
  - Renal disorder [Recovering/Resolving]

NARRATIVE: CASE EVENT DATE: 20200622
